FAERS Safety Report 6187205-7 (Version None)
Quarter: 2009Q2

REPORT INFORMATION
  Report Type: 
  Country: None (occurrence: None)
  Receive Date: 20090512
  Receipt Date: 20090504
  Transmission Date: 20091009
  Serious: Yes (Other)
  Sender: FDA-Public Use
  Company Number: PHEH2007US15444

PATIENT
  Sex: Female

DRUGS (4)
  1. ZOMETA [Suspect]
  2. CHEMOTHERAPEUTICS NOS [Concomitant]
  3. RADIATION THERAPY [Concomitant]
  4. HERCEPTIN [Concomitant]

REACTIONS (10)
  - ANAEMIA [None]
  - ANHEDONIA [None]
  - ANXIETY [None]
  - ENDODONTIC PROCEDURE [None]
  - HYPOTHYROIDISM [None]
  - INJURY [None]
  - INSOMNIA [None]
  - OSTEONECROSIS [None]
  - PAIN [None]
  - TOOTHACHE [None]
